FAERS Safety Report 20945454 (Version 1)
Quarter: 2022Q2

REPORT INFORMATION
  Report Type: Report from Study
  Country: US (occurrence: US)
  Receive Date: 20220610
  Receipt Date: 20220610
  Transmission Date: 20220720
  Serious: Yes (Hospitalization, Other)
  Sender: FDA-Public Use
  Company Number: US-GLAXOSMITHKLINE-US2022089302

PATIENT

DRUGS (3)
  1. BELIMUMAB [Suspect]
     Active Substance: BELIMUMAB
     Indication: Systemic lupus erythematosus
     Dosage: UNK
     Route: 016
  2. BELIMUMAB [Suspect]
     Active Substance: BELIMUMAB
     Dosage: EVERY 2 WEEKS FOR 6-8 WEEKS
     Route: 016
     Dates: start: 202203
  3. BELIMUMAB [Suspect]
     Active Substance: BELIMUMAB
     Dosage: MONTHLY (EVERY 3-4 WEEKS).
     Route: 016

REACTIONS (10)
  - Streptococcus test positive [Recovered/Resolved]
  - Vocal cord dysfunction [Not Recovered/Not Resolved]
  - Sepsis [Recovered/Resolved]
  - Renal failure [Recovered/Resolved]
  - Immobile [Recovered/Resolved]
  - Cardiac disorder [Recovered/Resolved]
  - Immune system disorder [Recovered/Resolved]
  - Illness [Unknown]
  - Scar [Unknown]
  - Extra dose administered [Unknown]
